FAERS Safety Report 7326576-2 (Version None)
Quarter: 2011Q1

REPORT INFORMATION
  Report Type: 
  Country: None (occurrence: None)
  Receive Date: 20110302
  Receipt Date: 20110221
  Transmission Date: 20110831
  Serious: Yes (Other)
  Sender: FDA-Public Use
  Company Number: MX-MERCK-1102MEX00018

PATIENT
  Age: 14 Year
  Sex: Female

DRUGS (1)
  1. SINGULAIR [Suspect]
     Route: 065

REACTIONS (2)
  - SUICIDAL IDEATION [None]
  - DEPRESSION [None]
